FAERS Safety Report 18154708 (Version 1)
Quarter: 2020Q3

REPORT INFORMATION
  Report Type: Spontaneous
  Country: CA (occurrence: CA)
  Receive Date: 20200817
  Receipt Date: 20200817
  Transmission Date: 20201103
  Serious: Yes (Hospitalization)
  Sender: FDA-Public Use
  Company Number: CA-ACCORD-195479

PATIENT
  Sex: Female

DRUGS (37)
  1. ACTEMRA [Suspect]
     Active Substance: TOCILIZUMAB
     Indication: PRODUCT USED FOR UNKNOWN INDICATION
     Dosage: 1 EVERY 1 MONTHS
     Route: 042
  2. OXYCONTIN [Suspect]
     Active Substance: OXYCODONE HYDROCHLORIDE
     Indication: PRODUCT USED FOR UNKNOWN INDICATION
  3. THIAMINE. [Suspect]
     Active Substance: THIAMINE
     Indication: PRODUCT USED FOR UNKNOWN INDICATION
     Dosage: 100 MG
  4. IRON [Concomitant]
     Active Substance: IRON
  5. ESOMEPRAZOLE/ESOMEPRAZOLE MAGNESIUM/ESOMEPRAZOLE SODIUM [Concomitant]
     Active Substance: ESOMEPRAZOLE
  6. COLECALCIFEROL [Concomitant]
     Active Substance: CHOLECALCIFEROL
  7. LOMOTIL [Concomitant]
     Active Substance: ATROPINE SULFATE\DIPHENOXYLATE HYDROCHLORIDE
  8. RISEDRONIC ACID [Concomitant]
     Active Substance: RISEDRONIC ACID
  9. PYRIDOXINE [Concomitant]
     Active Substance: PYRIDOXINE
  10. GABAPENTIN. [Suspect]
     Active Substance: GABAPENTIN
     Indication: PRODUCT USED FOR UNKNOWN INDICATION
     Dosage: 2 EVERY 1 DAYS
     Route: 048
  11. IRON [Concomitant]
     Active Substance: IRON
  12. ACLASTA [Concomitant]
     Active Substance: ZOLEDRONIC ACID
  13. FOLIC ACID. [Concomitant]
     Active Substance: FOLIC ACID
  14. NORTRIPTYLINE [Concomitant]
     Active Substance: NORTRIPTYLINE
  15. TYLENOL [Concomitant]
     Active Substance: ACETAMINOPHEN
  16. CELEBREX [Suspect]
     Active Substance: CELECOXIB
     Indication: RHEUMATOID ARTHRITIS
     Route: 046
  17. PANTOPRAZOLE [Concomitant]
     Active Substance: PANTOPRAZOLE
  18. THIAMINE. [Concomitant]
     Active Substance: THIAMINE
  19. DOCOSAHEXAENOIC ACID/EICOSAPENTAENOIC ACID [Suspect]
     Active Substance: DOCONEXENT\ICOSAPENT
     Indication: PRODUCT USED FOR UNKNOWN INDICATION
  20. ERGOCALCIFEROL. [Concomitant]
     Active Substance: ERGOCALCIFEROL
  21. RETINOL [Concomitant]
     Active Substance: RETINOL
  22. ENBREL [Suspect]
     Active Substance: ETANERCEPT
     Indication: RHEUMATOID ARTHRITIS
     Dosage: 1 EVERY 1 WEEKS
  23. FENTANYL. [Suspect]
     Active Substance: FENTANYL
     Indication: PRODUCT USED FOR UNKNOWN INDICATION
  24. MYOCHRYSINE [Suspect]
     Active Substance: GOLD SODIUM THIOMALATE
     Indication: RHEUMATOID ARTHRITIS
     Dosage: 1 EVERY 3 WEEKS
     Route: 030
  25. BIOTIN [Concomitant]
     Active Substance: BIOTIN
  26. TRAZODONE [Concomitant]
     Active Substance: TRAZODONE HYDROCHLORIDE
  27. HYDROXYCHLOROQUINE [Suspect]
     Active Substance: HYDROXYCHLOROQUINE
     Indication: RHEUMATOID ARTHRITIS
     Dosage: 1 EVERY 1 DAYS
  28. ORENCIA [Suspect]
     Active Substance: ABATACEPT
     Indication: RHEUMATOID ARTHRITIS
     Dosage: 1 EVERY 3 WEEKS
     Route: 042
  29. NICOTINAMIDE [Concomitant]
     Active Substance: NIACINAMIDE
  30. RIBOFLAVIN [Concomitant]
     Active Substance: RIBOFLAVIN
  31. ASCORBIC ACID. [Concomitant]
     Active Substance: ASCORBIC ACID
  32. METHOTREXATE. [Suspect]
     Active Substance: METHOTREXATE
     Indication: RHEUMATOID ARTHRITIS
     Dosage: 1 EVERY 1 WEEKS
     Route: 058
  33. NASONEX [Concomitant]
     Active Substance: MOMETASONE FUROATE
  34. ARAVA [Suspect]
     Active Substance: LEFLUNOMIDE
     Indication: PRODUCT USED FOR UNKNOWN INDICATION
     Dosage: 1 EVERY 1 DAYS
     Route: 048
  35. XELJANZ [Suspect]
     Active Substance: TOFACITINIB CITRATE
     Indication: PRODUCT USED FOR UNKNOWN INDICATION
  36. SULFASALAZINE. [Suspect]
     Active Substance: SULFASALAZINE
     Indication: RHEUMATOID ARTHRITIS
     Dosage: 1 EVERY 1 DAYS
     Route: 048
  37. ASCORBIC ACID. [Concomitant]
     Active Substance: ASCORBIC ACID

REACTIONS (23)
  - Deafness neurosensory [Unknown]
  - Diarrhoea [Unknown]
  - Drug ineffective [Unknown]
  - Drug intolerance [Unknown]
  - Blood potassium increased [Unknown]
  - Drug hypersensitivity [Unknown]
  - Blood magnesium increased [Unknown]
  - Renal impairment [Unknown]
  - Skin lesion [Unknown]
  - Cyst [Unknown]
  - Dry eye [Unknown]
  - Epigastric discomfort [Unknown]
  - Fatigue [Unknown]
  - Osteoarthritis [Unknown]
  - Pleural thickening [Unknown]
  - Treatment failure [Unknown]
  - Blood creatinine increased [Unknown]
  - Infection [Unknown]
  - Nausea [Unknown]
  - Osteopenia [Unknown]
  - Pleural fibrosis [Unknown]
  - Gastrointestinal disorder [Unknown]
  - Hypersensitivity [Unknown]
